FAERS Safety Report 5601503-4 (Version None)
Quarter: 2008Q1

REPORT INFORMATION
  Report Type: 
  Country: None (occurrence: None)
  Receive Date: 20080124
  Receipt Date: 20070319
  Transmission Date: 20080703
  Serious: Yes (Other)
  Sender: FDA-Public Use
  Company Number: US-BAYER-200710652BCC

PATIENT
  Sex: Male
  Weight: 86 kg

DRUGS (1)
  1. ALEVE COLD AND SINUS [Suspect]
     Indication: SINUS HEADACHE
     Dosage: TOTAL DAILY DOSE: 220 MG  UNIT DOSE: 220 MG
     Route: 048
     Dates: start: 20070228

REACTIONS (5)
  - ARTHROPOD BITE [None]
  - HYPERSENSITIVITY [None]
  - PHARYNGEAL OEDEMA [None]
  - PRURITUS [None]
  - SKIN HYPERTROPHY [None]
